FAERS Safety Report 4349138-8 (Version None)
Quarter: 2004Q2

REPORT INFORMATION
  Report Type: 
  Country: None (occurrence: None)
  Receive Date: 20040423
  Receipt Date: 20040414
  Transmission Date: 20050107
  Serious: Yes (Life-Threatening, Hospitalization)
  Sender: FDA-Public Use
  Company Number: 03P-087-0245013-00

PATIENT
  Age: 3 Year
  Sex: Male
  Weight: 12 kg

DRUGS (8)
  1. CARTROL [Suspect]
     Indication: ARRHYTHMIA
     Dosage: 2 MG, 1 IN 1 D, PER ORAL
     Route: 048
     Dates: start: 19991111, end: 20030515
  2. FUROSEMIDE [Concomitant]
  3. SPIRONOLACTONE [Concomitant]
  4. DIGOXIN [Concomitant]
  5. ENALAPRIL MALEATE [Concomitant]
  6. ASPIRIN [Concomitant]
  7. PILSICAINIDE HYDROCHLORIDE [Concomitant]
  8. WARFARIN POTASSIUM [Concomitant]

REACTIONS (4)
  - CONVULSION [None]
  - CYANOSIS [None]
  - DEPRESSED LEVEL OF CONSCIOUSNESS [None]
  - HYPOGLYCAEMIA [None]
